FAERS Safety Report 13678918 (Version 1)
Quarter: 2017Q2

REPORT INFORMATION
  Report Type: Spontaneous
  Country: BR (occurrence: BR)
  Receive Date: 20170622
  Receipt Date: 20170622
  Transmission Date: 20170830
  Serious: Yes (Disabling, Other)
  Sender: FDA-Public Use
  Company Number: BR-ALXN-A201706555AA

PATIENT
  Age: 47 Year
  Sex: Male

DRUGS (3)
  1. CORTICOIDEX [Concomitant]
     Indication: PRODUCT USED FOR UNKNOWN INDICATION
     Dosage: 20 MG, DAILY
     Route: 048
  2. SOLIRIS [Suspect]
     Active Substance: ECULIZUMAB
     Dosage: 900 MG, EVERY 14 DAYS
     Route: 042
     Dates: start: 20150903
  3. SOLIRIS [Suspect]
     Active Substance: ECULIZUMAB
     Dosage: 600 MG, WEEKLY FOR FOUR WEEKS
     Route: 042
     Dates: start: 20150806, end: 20150827

REACTIONS (11)
  - Anaemia [Unknown]
  - Haemolysis [Unknown]
  - Influenza [Recovering/Resolving]
  - Inappropriate schedule of drug administration [Unknown]
  - Asthenia [Not Recovered/Not Resolved]
  - Impaired quality of life [Unknown]
  - Chromaturia [Unknown]
  - Fatigue [Unknown]
  - Blood lactate dehydrogenase increased [Not Recovered/Not Resolved]
  - Jaundice [Not Recovered/Not Resolved]
  - Haemoglobin decreased [Unknown]
